FAERS Safety Report 7322500-7 (Version None)
Quarter: 2011Q1

REPORT INFORMATION
  Report Type: 
  Country: None (occurrence: None)
  Receive Date: 20110301
  Receipt Date: 20110211
  Transmission Date: 20110831
  Serious: Yes (Other)
  Sender: FDA-Public Use
  Company Number: US-BAYER-201031594NA

PATIENT
  Sex: Female

DRUGS (6)
  1. CHANTIX [Concomitant]
     Indication: EX-TOBACCO USER
  2. YASMIN [Suspect]
     Indication: ORAL CONTRACEPTION
     Dosage: UNK
  3. YAZ [Suspect]
     Indication: ORAL CONTRACEPTION
     Dosage: UNK
     Dates: start: 20080130, end: 20080917
  4. LEXAPRO [Concomitant]
     Indication: PREMENSTRUAL SYNDROME
     Dosage: UNK
     Dates: start: 20080130
  5. LEXAPRO [Concomitant]
     Indication: DEPRESSION
     Dosage: UNK
     Dates: start: 20110130
  6. ORTHO TRI-CYCLEN LO [Concomitant]
     Indication: ORAL CONTRACEPTION
     Dosage: UNK
     Dates: start: 20080917

REACTIONS (3)
  - GALLBLADDER INJURY [None]
  - MIGRAINE [None]
  - METRORRHAGIA [None]
